FAERS Safety Report 4907262-2 (Version None)
Quarter: 2006Q1

REPORT INFORMATION
  Report Type: 
  Country: None (occurrence: None)
  Receive Date: 20060207
  Receipt Date: 20060127
  Transmission Date: 20060701
  Serious: Yes (Hospitalization)
  Sender: FDA-Public Use
  Company Number: MEDI-0004091

PATIENT
  Age: 49 Year
  Sex: Male
  Weight: 73.4827 kg

DRUGS (3)
  1. ETHYOL [Suspect]
     Indication: RADIOTHERAPY
     Dosage: 500 MG, SUBCUTANEOUS
     Route: 058
     Dates: start: 20060113, end: 20060123
  2. RADIATION THERAPY [Concomitant]
  3. CISPLATIN [Concomitant]

REACTIONS (3)
  - CATHETER SITE INFECTION [None]
  - HYPOTENSION [None]
  - STAPHYLOCOCCAL INFECTION [None]
